FAERS Safety Report 8043351-4 (Version None)
Quarter: 2012Q1

REPORT INFORMATION
  Report Type: 
  Country: None (occurrence: None)
  Receive Date: 20120112
  Receipt Date: 20120104
  Transmission Date: 20120608
  Serious: Yes (Other)
  Sender: FDA-Public Use
  Company Number: US-PURDUE-USA-2011-0073650

PATIENT
  Sex: Female

DRUGS (3)
  1. BENZODIAZEPINE DERIVATIVES [Concomitant]
     Indication: PRODUCT USED FOR UNKNOWN INDICATION
  2. VICODIN [Suspect]
     Indication: ANALGESIC THERAPY
  3. BUTRANS [Suspect]
     Indication: PRODUCT USED FOR UNKNOWN INDICATION
     Route: 062

REACTIONS (2)
  - PSYCHOTIC DISORDER [None]
  - HALLUCINATION [None]
